FAERS Safety Report 18597932 (Version 2)
Quarter: 2021Q1

REPORT INFORMATION
  Report Type: Spontaneous
  Country: BR (occurrence: BR)
  Receive Date: 20201210
  Receipt Date: 20210114
  Transmission Date: 20210419
  Serious: Yes (Other)
  Sender: FDA-Public Use
  Company Number: BR-AMGEN-BRASP2020200664

PATIENT
  Age: 53 Year
  Sex: Female

DRUGS (2)
  1. LEFLUNOMIDE. [Concomitant]
     Active Substance: LEFLUNOMIDE
     Dosage: UNK
  2. ENBREL [Suspect]
     Active Substance: ETANERCEPT
     Indication: PRODUCT USED FOR UNKNOWN INDICATION
     Dosage: UNK
     Route: 065
     Dates: end: 201910

REACTIONS (7)
  - Thrombosis [Unknown]
  - Illness [Unknown]
  - Limb deformity [Unknown]
  - Bone disorder [Unknown]
  - Hypokinesia [Unknown]
  - Peripheral swelling [Unknown]
  - Osteoarthritis [Unknown]
